FAERS Safety Report 7769142-7 (Version None)
Quarter: 2011Q3

REPORT INFORMATION
  Report Type: 
  Country: None (occurrence: None)
  Receive Date: 20110922
  Receipt Date: 20110316
  Transmission Date: 20111222
  Serious: No
  Sender: FDA-Public Use
  Company Number: US-ASTRAZENECA-2010SE54793

PATIENT
  Sex: Female

DRUGS (2)
  1. SEROQUEL [Suspect]
     Indication: DEPRESSION
     Route: 048
  2. KLONOPIN [Concomitant]

REACTIONS (3)
  - DRUG DOSE OMISSION [None]
  - BIPOLAR DISORDER [None]
  - ASTHMA [None]
